FAERS Safety Report 25131097 (Version 1)
Quarter: 2025Q1

REPORT INFORMATION
  Report Type: Spontaneous
  Country: US (occurrence: US)
  Receive Date: 20250327
  Receipt Date: 20250327
  Transmission Date: 20250409
  Serious: No
  Sender: ITALFARMACO SPA
  Company Number: US-ITALFARMACO SPA-2173753

PATIENT
  Age: 18 Year
  Sex: Male
  Weight: 43.4 kg

DRUGS (12)
  1. DUVYZAT [Suspect]
     Active Substance: GIVINOSTAT
     Indication: Duchenne muscular dystrophy
     Dates: start: 20250128
  2. DEFLAZACORT [Concomitant]
     Active Substance: DEFLAZACORT
  3. CALCIUM CARBONATE [Concomitant]
     Active Substance: CALCIUM CARBONATE
  4. MELATONIN [Concomitant]
     Active Substance: MELATONIN
  5. METOPROLOL [Concomitant]
     Active Substance: METOPROLOL
  6. ALDACTONE [Concomitant]
     Active Substance: SPIRONOLACTONE
  7. LISINOPRIL [Concomitant]
     Active Substance: LISINOPRIL
  8. METFORMIN [Concomitant]
     Active Substance: METFORMIN HYDROCHLORIDE
  9. COENZYME Q10 [Concomitant]
     Active Substance: DIETARY SUPPLEMENT\UBIDECARENONE
  10. VITAMIN D3 [Concomitant]
     Active Substance: CHOLECALCIFEROL
  11. AZSTARYS [Concomitant]
     Active Substance: DEXMETHYLPHENIDATE HYDROCHLORIDE\SERDEXMETHYLPHENIDATE CHLORIDE
  12. FOSAMAX [Concomitant]
     Active Substance: ALENDRONATE SODIUM

REACTIONS (1)
  - Electrocardiogram QT prolonged [Recovered/Resolved]

NARRATIVE: CASE EVENT DATE: 20250210
